FAERS Safety Report 8959790 (Version 1)
Quarter: 2012Q4

REPORT INFORMATION
  Report Type: 
  Country: BR (occurrence: BR)
  Receive Date: 20121212
  Receipt Date: 20121212
  Transmission Date: 20130627
  Serious: Yes (Other)
  Sender: FDA-Public Use
  Company Number: PHHY2012BR096505

PATIENT
  Sex: Female

DRUGS (2)
  1. RASILEZ [Suspect]
     Indication: HYPERTENSION
     Dosage: 1 DF, daily
     Route: 048
  2. INDAPAMIDE [Concomitant]
     Indication: HYPERTENSION
     Dosage: 1 DF, BIW

REACTIONS (2)
  - Lung neoplasm malignant [Unknown]
  - Dyspnoea [Recovered/Resolved]
